FAERS Safety Report 21512321 (Version 1)
Quarter: 2022Q4

REPORT INFORMATION
  Report Type: Spontaneous
  Country: US (occurrence: None)
  Receive Date: 20221027
  Receipt Date: 20221027
  Transmission Date: 20230113
  Serious: No
  Sender: FDA-Public Use
  Company Number: US-Ultragenyx Pharmaceutical Inc.-US-UGNX-22-00467

PATIENT
  Age: 1 Year
  Sex: Male
  Weight: 13.15 kg

DRUGS (3)
  1. DOJOLVI [Suspect]
     Active Substance: TRIHEPTANOIN
     Indication: Fatty acid oxidation disorder
     Route: 048
     Dates: start: 20220709
  2. DOJOLVI [Suspect]
     Active Substance: TRIHEPTANOIN
     Dosage: 8 ML 2X AND 9ML 2X DAILY
     Dates: start: 20220707
  3. DOJOLVI [Suspect]
     Active Substance: TRIHEPTANOIN
     Route: 048

REACTIONS (5)
  - Urticaria [Recovering/Resolving]
  - Rash [Recovering/Resolving]
  - Illness [Unknown]
  - Ear infection [Unknown]
  - Hypersensitivity [Unknown]

NARRATIVE: CASE EVENT DATE: 20220709
